FAERS Safety Report 9327052 (Version 3)
Quarter: 2013Q3

REPORT INFORMATION
  Report Type: Spontaneous
  Country: US (occurrence: US)
  Receive Date: 20130604
  Receipt Date: 20130723
  Transmission Date: 20140515
  Serious: No
  Sender: FDA-Public Use
  Company Number: US-PFIZER INC-2013167212

PATIENT
  Age: 56 Year
  Sex: Male
  Weight: 58.5 kg

DRUGS (5)
  1. SUTENT [Suspect]
     Indication: RENAL CANCER
     Dosage: 50 MG, CYCLIC (28 DAYS ON THERAPY AND 14 DAYS OFF THERAPY)
     Dates: start: 20130501
  2. SUTENT [Suspect]
     Dosage: 50 MG, CYCLIC (28 DAYS ON THE THERAPY AND 14 DAYS OFF THE THERAPY)
     Dates: start: 20130524
  3. LEVOTHYROXINE [Concomitant]
     Indication: THYROID DISORDER
     Dosage: 0.5 MG, ONCE DAILY
  4. MS CONTIN [Concomitant]
     Dosage: UNK
  5. COLACE [Concomitant]
     Dosage: UNK

REACTIONS (4)
  - Fatigue [Not Recovered/Not Resolved]
  - Nausea [Recovered/Resolved]
  - Chest discomfort [Unknown]
  - Weight decreased [Unknown]
